FAERS Safety Report 9894986 (Version 1)
Quarter: 2014Q1

REPORT INFORMATION
  Report Type: Spontaneous
  Country: US (occurrence: US)
  Receive Date: 20140213
  Receipt Date: 20140213
  Transmission Date: 20141002
  Serious: No
  Sender: FDA-Public Use
  Company Number: US-BRISTOL-MYERS SQUIBB COMPANY-17264250

PATIENT
  Age: 54 Year
  Sex: Female
  Weight: 138 kg

DRUGS (11)
  1. ABATACEPT SUBQ INJECTION 125MG/ML [Suspect]
     Route: 058
  2. NEXIUM [Concomitant]
     Dosage: CAPS
  3. HYDROCHLOROTHIAZIDE [Concomitant]
     Dosage: TABS
  4. PREDNISONE [Concomitant]
     Dosage: TABS
  5. CYMBALTA [Concomitant]
     Dosage: CAPS
  6. ADVIL [Concomitant]
     Dosage: TABS
  7. VITAMIN D [Concomitant]
     Dosage: VITAMIN D - CAPS 1000 UNITS
  8. VITAMIN C [Concomitant]
     Dosage: VITAMIN C CHEW
  9. VITAMIN E [Concomitant]
     Dosage: VITAMIN E CAPS 1000UNITS
  10. IRON TABLETS [Concomitant]
  11. LEFLUNOMIDE [Concomitant]
     Dosage: TABS

REACTIONS (2)
  - Nasal ulcer [Recovering/Resolving]
  - Rheumatoid arthritis [Unknown]
